FAERS Safety Report 12328612 (Version 1)
Quarter: 2016Q2

REPORT INFORMATION
  Report Type: Spontaneous
  Country: US (occurrence: US)
  Receive Date: 20160503
  Receipt Date: 20160503
  Transmission Date: 20160815
  Serious: No
  Sender: FDA-Public Use
  Company Number: US-BEH-2015049604

PATIENT
  Sex: Female
  Weight: 77 kg

DRUGS (16)
  1. DIPHENHYDRAMINE. [Concomitant]
     Active Substance: DIPHENHYDRAMINE
  2. CHROMIUM PICOLINATE [Concomitant]
     Active Substance: CHROMIUM PICOLINATE
  3. PROTEIN SUPPLEMENTS [Concomitant]
     Active Substance: PROTEIN
  4. AMINO ACIDS [Concomitant]
     Active Substance: AMINO ACIDS
  5. LIDOCAINE. [Concomitant]
     Active Substance: LIDOCAINE
  6. GLUTAMINE [Concomitant]
     Active Substance: GLUTAMINE
  7. METROCREAM [Concomitant]
     Active Substance: METRONIDAZOLE
  8. EPIPEN [Concomitant]
     Active Substance: EPINEPHRINE
  9. FISH OIL OMEGA 3 [Concomitant]
  10. BROMELAINS [Concomitant]
     Active Substance: BROMELAINS
  11. FLONASE [Concomitant]
     Active Substance: FLUTICASONE PROPIONATE
  12. NYSTATIN. [Concomitant]
     Active Substance: NYSTATIN
  13. MULTIVITAMIN [Concomitant]
     Active Substance: VITAMINS
  14. HIZENTRA [Suspect]
     Active Substance: HUMAN IMMUNOGLOBULIN G
     Indication: IMMUNODEFICIENCY COMMON VARIABLE
     Dosage: 4 GM 20 ML VIAL; DOSING PERIOD 25FEB2015 TO 24MAR2015
     Route: 058
  15. ACETAMINOPHEN. [Concomitant]
     Active Substance: ACETAMINOPHEN
  16. ZYRTEC [Concomitant]
     Active Substance: CETIRIZINE HYDROCHLORIDE

REACTIONS (3)
  - Nausea [Recovered/Resolved]
  - Headache [Recovered/Resolved]
  - Skin irritation [Unknown]
